FAERS Safety Report 11518407 (Version 2)
Quarter: 2015Q4

REPORT INFORMATION
  Report Type: Spontaneous
  Country: US (occurrence: US)
  Receive Date: 20150917
  Receipt Date: 20151012
  Transmission Date: 20160304
  Serious: Yes (Other)
  Sender: FDA-Public Use
  Company Number: US-ROXANE LABORATORIES, INC.-2015-RO-01533RO

PATIENT
  Age: 63 Year
  Sex: Female

DRUGS (1)
  1. PREDNISONE. [Suspect]
     Active Substance: PREDNISONE
     Indication: INFLAMMATION
     Dosage: 10 MG
     Route: 048
     Dates: start: 20150816

REACTIONS (6)
  - Gait disturbance [Recovered/Resolved]
  - Musculoskeletal pain [Recovered/Resolved]
  - Muscular weakness [Recovered/Resolved]
  - Product quality issue [Recovered/Resolved]
  - Pain [Recovered/Resolved]
  - Drug ineffective [Recovered/Resolved]

NARRATIVE: CASE EVENT DATE: 20150817
